FAERS Safety Report 19711172 (Version 1)
Quarter: 2021Q3

REPORT INFORMATION
  Report Type: Spontaneous
  Country: US (occurrence: US)
  Receive Date: 20210816
  Receipt Date: 20210816
  Transmission Date: 20211014
  Serious: No
  Sender: FDA-Public Use
  Company Number: US-SA-2021SA268688

PATIENT
  Age: 21 Year
  Sex: Male

DRUGS (9)
  1. OMEPRAZOLE. [Concomitant]
     Active Substance: OMEPRAZOLE
  2. DUPIXENT [Suspect]
     Active Substance: DUPILUMAB
     Indication: ILLNESS
     Dosage: 300 MG, QOW
     Route: 058
     Dates: start: 201910
  3. FLUOXETINE HCL [Concomitant]
     Active Substance: FLUOXETINE HYDROCHLORIDE
  4. VIBERZI [Concomitant]
     Active Substance: ELUXADOLINE
  5. XYZAL [Concomitant]
     Active Substance: LEVOCETIRIZINE DIHYDROCHLORIDE
  6. ADDERALL [Concomitant]
     Active Substance: AMPHETAMINE ASPARTATE\AMPHETAMINE SULFATE\DEXTROAMPHETAMINE SACCHARATE\DEXTROAMPHETAMINE SULFATE
  7. EPIPEN [Concomitant]
     Active Substance: EPINEPHRINE
     Dosage: 0.3MG/O.3 AUTO INJCT
  8. MONTELUKAST SODIUM. [Concomitant]
     Active Substance: MONTELUKAST SODIUM
  9. VENTOLIN HFA [Concomitant]
     Active Substance: ALBUTEROL SULFATE

REACTIONS (4)
  - Oesophagitis [Unknown]
  - Eosinophil count abnormal [Unknown]
  - Product use in unapproved indication [Unknown]
  - Conjunctivitis [Unknown]

NARRATIVE: CASE EVENT DATE: 201910
